FAERS Safety Report 24197110 (Version 8)
Quarter: 2025Q1

REPORT INFORMATION
  Report Type: Spontaneous
  Country: JP (occurrence: JP)
  Receive Date: 20240810
  Receipt Date: 20250311
  Transmission Date: 20250409
  Serious: Yes (Hospitalization, Other)
  Sender: UNITED THERAPEUTICS
  Company Number: JP-UNITED THERAPEUTICS-UNT-2024-016848

PATIENT
  Age: 86 Year
  Sex: Female

DRUGS (6)
  1. TYVASO [Suspect]
     Active Substance: TREPROSTINIL
     Indication: Pulmonary hypertension
     Dosage: 6 ?G, QD
     Dates: start: 20240529, end: 2024
  2. TYVASO [Suspect]
     Active Substance: TREPROSTINIL
     Indication: Chronic obstructive pulmonary disease
     Dosage: 6 ?G, TID
     Dates: start: 2024, end: 2024
  3. TYVASO [Suspect]
     Active Substance: TREPROSTINIL
     Dosage: 12 ?G, TID
     Dates: start: 2024, end: 2024
  4. TYVASO [Suspect]
     Active Substance: TREPROSTINIL
     Dosage: 18 ?G, TID
     Dates: start: 2024, end: 20240802
  5. TYVASO [Suspect]
     Active Substance: TREPROSTINIL
     Dosage: 18 ?G, TID (RESTARTED)
     Dates: start: 2024
  6. AZOSEMIDE [Concomitant]
     Active Substance: AZOSEMIDE
     Indication: Oedema peripheral

REACTIONS (15)
  - Atrial fibrillation [Recovered/Resolved]
  - Arrhythmia [Unknown]
  - Disease recurrence [Recovered/Resolved]
  - Atrial flutter [Recovered/Resolved]
  - Physical deconditioning [Unknown]
  - Cardiac ventricular thrombosis [Unknown]
  - Oropharyngeal pain [Recovering/Resolving]
  - Herpes zoster [Unknown]
  - Dyspnoea [Not Recovered/Not Resolved]
  - Oedema peripheral [Recovered/Resolved]
  - Malaise [Not Recovered/Not Resolved]
  - Constipation [Not Recovered/Not Resolved]
  - Chronic obstructive pulmonary disease [Unknown]
  - Off label use [Unknown]
  - Underdose [Unknown]

NARRATIVE: CASE EVENT DATE: 20240101
